FAERS Safety Report 16013082 (Version 1)
Quarter: 2019Q1

REPORT INFORMATION
  Report Type: Spontaneous
  Country: DE (occurrence: DE)
  Receive Date: 20190227
  Receipt Date: 20190227
  Transmission Date: 20190418
  Serious: No
  Sender: FDA-Public Use
  Company Number: DE-B. BRAUN MEDICAL INC.-2063272

PATIENT
  Age: 82 Year
  Sex: Male

DRUGS (1)
  1. POTASSIUM CHLORIDE FOR INJECTION CONCENTRATE USP 0264-1940-20 (ANDA 08 [Suspect]
     Active Substance: POTASSIUM CHLORIDE

REACTIONS (2)
  - Cardiac arrest [None]
  - Medication error [None]
